FAERS Safety Report 4841057-3 (Version None)
Quarter: 2005Q4

REPORT INFORMATION
  Report Type: 
  Country: None (occurrence: None)
  Receive Date: 20051130
  Receipt Date: 20050912
  Transmission Date: 20060501
  Serious: No
  Sender: FDA-Public Use
  Company Number: US-BRISTOL-MYERS SQUIBB COMPANY-13107495

PATIENT
  Age: 34 Year
  Sex: Female

DRUGS (4)
  1. ABILIFY [Suspect]
     Route: 048
     Dates: start: 20040901
  2. DEPAKOTE [Concomitant]
     Dates: start: 20050401
  3. CARBAMAZEPINE [Concomitant]
     Dates: start: 20050401
  4. ADDERALL 10 [Concomitant]
     Dates: start: 20050401

REACTIONS (1)
  - PREGNANCY [None]
